FAERS Safety Report 8042633-X (Version None)
Quarter: 2012Q1

REPORT INFORMATION
  Report Type: 
  Country: None (occurrence: None)
  Receive Date: 20120112
  Receipt Date: 20120106
  Transmission Date: 20120608
  Serious: Yes (Hospitalization)
  Sender: FDA-Public Use
  Company Number: US-GENZYME-FABR-1002279

PATIENT

DRUGS (1)
  1. FABRAZYME [Suspect]
     Indication: FABRY'S DISEASE
     Dosage: UNK
     Dates: start: 20110606

REACTIONS (8)
  - SWOLLEN TONGUE [None]
  - SWELLING FACE [None]
  - ERYTHEMA [None]
  - EYELID OEDEMA [None]
  - DYSPNOEA [None]
  - URTICARIA [None]
  - PRURITUS [None]
  - CHEST PAIN [None]
